FAERS Safety Report 8243691-X (Version None)
Quarter: 2012Q1

REPORT INFORMATION
  Report Type: 
  Country: None (occurrence: None)
  Receive Date: 20120309
  Receipt Date: 20110118
  Transmission Date: 20120608
  Serious: Yes (Hospitalization)
  Sender: FDA-Public Use
  Company Number: 213265

PATIENT
  Age: 59 Year
  Sex: Female

DRUGS (9)
  1. BENICAR [Concomitant]
  2. CALCIPOTRIENE AND BETAMETHASONE DIPROPIONATE [Suspect]
     Indication: PSORIASIS
     Dosage: 1 IN 1 D, TOPICAL
     Route: 061
     Dates: start: 20101222
  3. LEVOTHROXINE (LEVOTHYROXINE) [Concomitant]
  4. JANTOVEN [Concomitant]
  5. CALCIPOTRIENE AND BETAMETHASONE DIPROPIONATE [Suspect]
     Indication: PSORIASIS
     Dosage: 1 IN 1 D, TOPICAL
     Route: 061
     Dates: start: 20101101
  6. AGGRENOX [Concomitant]
  7. PRAVASTATIN [Concomitant]
  8. CYANOCOBALAM (CYANOCOBALAMIN) [Concomitant]
  9. LYRICA [Concomitant]

REACTIONS (1)
  - CEREBROVASCULAR ACCIDENT [None]
